FAERS Safety Report 12318590 (Version 2)
Quarter: 2016Q3

REPORT INFORMATION
  Report Type: Report from Study
  Country: US (occurrence: US)
  Receive Date: 20160429
  Receipt Date: 20160801
  Transmission Date: 20161109
  Serious: Yes (Other)
  Sender: FDA-Public Use
  Company Number: US-REGENERON PHARMACEUTICALS, INC.-2016-16349

PATIENT

DRUGS (1)
  1. EYLEA [Suspect]
     Active Substance: AFLIBERCEPT
     Indication: MACULAR OEDEMA
     Dosage: 2 MG MILLIGRAM(S), ONE INJECTION IN OS EVERY 8 WEEKS
     Route: 031
     Dates: start: 201508

REACTIONS (1)
  - Diabetic retinal oedema [Unknown]

NARRATIVE: CASE EVENT DATE: 20160426
